FAERS Safety Report 8485093-7 (Version None)
Quarter: 2012Q3

REPORT INFORMATION
  Report Type: 
  Country: None (occurrence: None)
  Receive Date: 20120703
  Receipt Date: 20120621
  Transmission Date: 20120928
  Serious: Yes (Other)
  Sender: FDA-Public Use
  Company Number: JP-VERTEX PHARMACEUTICALS INC.-AE-2012-008778

PATIENT
  Age: 51 Year
  Sex: Male

DRUGS (6)
  1. REBETOL [Concomitant]
     Route: 048
     Dates: start: 20120619
  2. REBETOL [Concomitant]
     Indication: HEPATITIS C
     Route: 048
     Dates: start: 20120522, end: 20120618
  3. RABEPRAZOLE SODIUM [Concomitant]
     Route: 048
  4. URSO 250 [Concomitant]
     Route: 048
  5. TELAVIC (TELAPREVIR) [Suspect]
     Indication: HEPATITIS C
     Route: 048
     Dates: start: 20120522
  6. PEGINTERFERON ALFA-2B [Concomitant]
     Indication: HEPATITIS C
     Route: 048
     Dates: start: 20120522

REACTIONS (1)
  - RENAL IMPAIRMENT [None]
